FAERS Safety Report 13657752 (Version 2)
Quarter: 2017Q2

REPORT INFORMATION
  Report Type: Spontaneous
  Country: CA (occurrence: CA)
  Receive Date: 20170615
  Receipt Date: 20170621
  Transmission Date: 20170830
  Serious: Yes (Hospitalization)
  Sender: FDA-Public Use
  Company Number: CA-ABBVIE-17K-028-2006884-00

PATIENT
  Age: 63 Year
  Sex: Female

DRUGS (6)
  1. DUODOPA [Suspect]
     Active Substance: CARBIDOPA\LEVODOPA
     Dosage: CHANGING CONTINUOUS DOSE RANGING 3.6 TO 4.2 MILLILITERS PER HOUR
     Route: 050
     Dates: start: 2017, end: 2017
  2. DUODOPA [Suspect]
     Active Substance: CARBIDOPA\LEVODOPA
     Dosage: DECREASE NIGHT DOSE TO 2.6 (MLS/HR) MILLILITERS PER HOUR
     Route: 050
     Dates: start: 2017, end: 2017
  3. AMLODIPINE [Concomitant]
     Active Substance: AMLODIPINE BESYLATE
     Indication: PRODUCT USED FOR UNKNOWN INDICATION
     Route: 048
  4. DUODOPA [Suspect]
     Active Substance: CARBIDOPA\LEVODOPA
     Dosage: DAY TIME DOSE AT 3.6 MILLILITERS PER HOUR AND NIGHT DOSE TO 1.8 MILLILITERS PER HOUR
     Route: 050
     Dates: start: 20170613
  5. DUODOPA [Suspect]
     Active Substance: CARBIDOPA\LEVODOPA
     Indication: PARKINSON^S DISEASE
     Dosage: 24 H INFUSION
     Route: 050
     Dates: start: 20160524
  6. DUODOPA [Suspect]
     Active Substance: CARBIDOPA\LEVODOPA
     Dosage: 3.6 (MLS/HR) MILLILITERS PER HOUR CONTINUOUSLY NO MORNING DOSE
     Route: 050
     Dates: start: 201701, end: 2017

REACTIONS (7)
  - Hallucination [Not Recovered/Not Resolved]
  - Cognitive disorder [Not Recovered/Not Resolved]
  - Parkinson^s disease [Unknown]
  - Urinary tract infection [Unknown]
  - Dyskinesia [Unknown]
  - Blood calcium decreased [Unknown]
  - Paranoia [Not Recovered/Not Resolved]

NARRATIVE: CASE EVENT DATE: 20170313
